FAERS Safety Report 21789093 (Version 1)
Quarter: 2022Q4

REPORT INFORMATION
  Report Type: Other
  Country: CA (occurrence: CA)
  Receive Date: 20221228
  Receipt Date: 20221228
  Transmission Date: 20230113
  Serious: Yes (Other)
  Sender: FDA-Public Use
  Company Number: CA-PFIZER INC-202201397944

PATIENT
  Age: 58 Year
  Sex: Female

DRUGS (5)
  1. CEFTRIAXONE SODIUM [Suspect]
     Active Substance: CEFTRIAXONE SODIUM
     Indication: Arthritis bacterial
     Dosage: UNK
  2. SULFASALAZINE [Suspect]
     Active Substance: SULFASALAZINE
     Indication: Rheumatoid arthritis
     Dosage: UNK
  3. ALLOPURINOL [Suspect]
     Active Substance: ALLOPURINOL
     Indication: Gout
     Dosage: UNK
  4. ERTAPENEM [Suspect]
     Active Substance: ERTAPENEM
     Indication: Arthritis bacterial
     Dosage: UNK
  5. PENICILLIN V [Suspect]
     Active Substance: PENICILLIN V
     Indication: Arthritis bacterial
     Dosage: UNK

REACTIONS (2)
  - Granulomatous dermatitis [Unknown]
  - Lichenoid keratosis [Unknown]
